FAERS Safety Report 8563592-7 (Version None)
Quarter: 2012Q3

REPORT INFORMATION
  Report Type: 
  Country: None (occurrence: None)
  Receive Date: 20120803
  Receipt Date: 20120727
  Transmission Date: 20120928
  Serious: No
  Sender: FDA-Public Use
  Company Number: US-009507513-1207USA011544

PATIENT

DRUGS (3)
  1. PEG-INTRON [Suspect]
     Indication: HEPATITIS C
     Dosage: 80 MICROGRAM, QW
     Route: 058
     Dates: start: 20120501
  2. LASIX [Concomitant]
  3. RIBASPHERE [Suspect]

REACTIONS (4)
  - FATIGUE [None]
  - DRY SKIN [None]
  - DEPRESSION [None]
  - RASH [None]
